FAERS Safety Report 6047726-4 (Version None)
Quarter: 2009Q1

REPORT INFORMATION
  Report Type: 
  Country: None (occurrence: None)
  Receive Date: 20090123
  Receipt Date: 20090114
  Transmission Date: 20090719
  Serious: Yes (Hospitalization)
  Sender: FDA-Public Use
  Company Number: SE-JNJFOC-20080905930

PATIENT
  Age: 30 Year
  Sex: Female
  Weight: 95 kg

DRUGS (4)
  1. REMICADE [Suspect]
     Indication: COLITIS ULCERATIVE
     Route: 042
  2. OMEPRAZOLE [Concomitant]
     Indication: DYSPEPSIA
     Route: 048
  3. ALVEDON [Concomitant]
     Indication: PAIN
     Route: 048
  4. CALCICHEW D3 [Concomitant]
     Indication: OSTEOPOROSIS PROPHYLAXIS
     Route: 048

REACTIONS (5)
  - ANAL ABSCESS [None]
  - COLECTOMY [None]
  - COLITIS [None]
  - POSTOPERATIVE WOUND INFECTION [None]
  - RECTAL OBSTRUCTION [None]
